FAERS Safety Report 9818309 (Version 1)
Quarter: 2013Q4

REPORT INFORMATION
  Report Type: Spontaneous
  Country: US (occurrence: None)
  Receive Date: 20131223
  Receipt Date: 20131223
  Transmission Date: 20140711
  Serious: No
  Sender: FDA-Public Use
  Company Number: 219644

PATIENT
  Sex: Male

DRUGS (3)
  1. PICATO [Suspect]
     Indication: ACTINIC KERATOSIS
  2. AMLODIPINE (AMLODIPINE) [Concomitant]
  3. METOPROLOL (METOPROLOL) [Concomitant]

REACTIONS (6)
  - Application site rash [None]
  - Application site scab [None]
  - Off label use [None]
  - Accidental overdose [None]
  - Drug ineffective [None]
  - Prescribed overdose [None]
